FAERS Safety Report 12481972 (Version 5)
Quarter: 2017Q1

REPORT INFORMATION
  Report Type: Report from Study
  Country: PL (occurrence: PL)
  Receive Date: 20160620
  Receipt Date: 20170203
  Transmission Date: 20170428
  Serious: Yes (Death, Hospitalization, Other)
  Sender: FDA-Public Use
  Company Number: PL-EXELIXIS-XL18416006540

PATIENT
  Age: 62 Year
  Sex: Female
  Weight: 55.6 kg

DRUGS (11)
  1. BLINDED XL184 [Suspect]
     Active Substance: CABOZANTINIB
     Indication: MEDULLARY THYROID CANCER
     Dosage: UNK
     Route: 048
     Dates: start: 20160203, end: 20160609
  2. BLINDED XL184 [Suspect]
     Active Substance: CABOZANTINIB
     Indication: MEDULLARY THYROID CANCER
     Dosage: UNK
     Route: 048
     Dates: start: 20160203, end: 20160609
  3. OMEPRAZOL [Concomitant]
     Active Substance: OMEPRAZOLE
  4. IBUPROM [Concomitant]
     Active Substance: IBUPROFEN
  5. PROCTO-HEMOLAN [Concomitant]
  6. ALFADIOL [Concomitant]
     Active Substance: ALFACALCIDOL
  7. MEGACE [Concomitant]
     Active Substance: MEGESTROL ACETATE
  8. EUTHYROX [Concomitant]
     Active Substance: LEVOTHYROXINE SODIUM
  9. CALPEROS [Concomitant]
     Active Substance: CALCIUM CARBONATE
  10. HEMOFER PROLONGATUM [Concomitant]
  11. LAREMID [Concomitant]

REACTIONS (3)
  - Dyspnoea [Not Recovered/Not Resolved]
  - Cardiac failure [Fatal]
  - Anaemia [Recovering/Resolving]

NARRATIVE: CASE EVENT DATE: 20160610
